FAERS Safety Report 9828882 (Version 1)
Quarter: 2014Q1

REPORT INFORMATION
  Report Type: Report from Study
  Country: US (occurrence: US)
  Receive Date: 20140118
  Receipt Date: 20140118
  Transmission Date: 20141002
  Serious: Yes (Hospitalization)
  Sender: FDA-Public Use
  Company Number: US-ABBVIE-14P-163-1188417-00

PATIENT
  Sex: Female

DRUGS (21)
  1. FOLIC ACID [Concomitant]
     Indication: PRODUCT USED FOR UNKNOWN INDICATION
  2. HYDROCODONE [Concomitant]
     Indication: PRODUCT USED FOR UNKNOWN INDICATION
     Dosage: 1.5 TAB QAM, 1 TAB AFTERNOON, 1 TAB QPM
  3. SYNTHROID [Concomitant]
     Indication: HYPOTHYROIDISM
  4. GABAPENTIN [Concomitant]
     Indication: RHEUMATOID ARTHRITIS
  5. MULTIVITAMIN [Concomitant]
     Indication: PRODUCT USED FOR UNKNOWN INDICATION
  6. CALCIUM [Concomitant]
     Indication: PRODUCT USED FOR UNKNOWN INDICATION
  7. ALLERTEC [Concomitant]
     Indication: HYPERSENSITIVITY
  8. ESTRA-C [Concomitant]
     Indication: PRODUCT USED FOR UNKNOWN INDICATION
  9. VEGETABLE LAXATIVE AND STOOL SOFTENER [Concomitant]
     Indication: CONSTIPATION
  10. NITROGLYCERINE [Concomitant]
     Indication: PRODUCT USED FOR UNKNOWN INDICATION
  11. FLUTICASONE [Concomitant]
     Indication: SINUS DISORDER
     Route: 045
  12. HUMIRA [Suspect]
     Indication: RHEUMATOID ARTHRITIS
     Dates: start: 2006
  13. ASPIRIN [Concomitant]
     Indication: CARDIAC DISORDER
  14. ATENOLOL [Concomitant]
     Indication: CARDIAC DISORDER
  15. PLAVIX [Concomitant]
     Indication: CARDIAC DISORDER
  16. LISINOPRIL [Concomitant]
     Indication: HYPERTENSION
  17. SIMVASTATIN [Concomitant]
     Indication: BLOOD CHOLESTEROL INCREASED
  18. ALPRAZOLAM [Concomitant]
     Indication: INSOMNIA
  19. BUPROPION [Concomitant]
     Indication: DEPRESSION
     Dosage: 2 TAB QAM, 1 TAB QPM
  20. CITALOPRAM [Concomitant]
     Indication: DEPRESSION
  21. METHOTREXATE [Concomitant]
     Indication: PRODUCT USED FOR UNKNOWN INDICATION

REACTIONS (4)
  - Device occlusion [Recovered/Resolved]
  - Malaise [Unknown]
  - Pain [Recovered/Resolved]
  - Sinus headache [Not Recovered/Not Resolved]
